FAERS Safety Report 24567677 (Version 1)
Quarter: 2024Q4

REPORT INFORMATION
  Report Type: Report from Study
  Country: CO (occurrence: CO)
  Receive Date: 20241031
  Receipt Date: 20241031
  Transmission Date: 20250115
  Serious: Yes (Death)
  Sender: UCB
  Company Number: CO-UCBSA-2024055954

PATIENT
  Age: 77 Year
  Sex: Male

DRUGS (3)
  1. ROTIGOTINE [Suspect]
     Active Substance: ROTIGOTINE
     Indication: Parkinson^s disease
     Dosage: 4 MG X 1 PER 24 HOURS
     Route: 062
     Dates: start: 20230502, end: 20231204
  2. ROTIGOTINE [Suspect]
     Active Substance: ROTIGOTINE
     Dosage: 6 MG X 1 PER 24 HOURS
     Route: 062
     Dates: start: 20231205, end: 20240408
  3. ROTIGOTINE [Suspect]
     Active Substance: ROTIGOTINE
     Dosage: 8 MG X 1 PER 24 HOURS
     Route: 062
     Dates: start: 20240409, end: 20240803

REACTIONS (1)
  - Death [Fatal]

NARRATIVE: CASE EVENT DATE: 20240803
